FAERS Safety Report 6534482-6 (Version None)
Quarter: 2010Q1

REPORT INFORMATION
  Report Type: 
  Country: None (occurrence: None)
  Receive Date: 20100112
  Receipt Date: 20100107
  Transmission Date: 20100710
  Serious: Yes (Other)
  Sender: FDA-Public Use
  Company Number: US-BRISTOL-MYERS SQUIBB COMPANY-14926315

PATIENT
  Age: 13 Year
  Sex: Female
  Weight: 41 kg

DRUGS (10)
  1. ORENCIA [Suspect]
     Indication: JUVENILE ARTHRITIS
     Route: 042
  2. CYMBALTA [Concomitant]
     Dosage: FORMULATION:CAPSULE
  3. FLEXERIL [Concomitant]
  4. MIRALAX [Concomitant]
     Dosage: 1DF=1 CAPFUL
  5. PREDNISONE [Concomitant]
     Dosage: FORMULATION:TABLET
  6. METHOTREXATE [Concomitant]
     Route: 048
  7. FOLIC ACID [Concomitant]
     Dosage: FORMULATION:TABLET
     Route: 048
  8. ULTRAM [Concomitant]
     Dosage: FORMULATION:TABLET;PRN
  9. DESOGEN [Concomitant]
     Dosage: 1DF=0.15MG-30MCG TABLET
  10. PROVENTIL GENTLEHALER [Concomitant]
     Dosage: 2 PUFFS;PRN

REACTIONS (1)
  - GASTRITIS [None]
